FAERS Safety Report 20020489 (Version 2)
Quarter: 2021Q4

REPORT INFORMATION
  Report Type: Report from Study
  Country: CY (occurrence: CY)
  Receive Date: 20211101
  Receipt Date: 20211115
  Transmission Date: 20220303
  Serious: Yes (Hospitalization, Other)
  Sender: FDA-Public Use
  Company Number: CY-NOVARTISPH-NVSC2021CY234162

PATIENT
  Age: 65 Year
  Sex: Female

DRUGS (7)
  1. ALPELISIB [Suspect]
     Active Substance: ALPELISIB
     Indication: Breast cancer metastatic
     Dosage: 300 MG (STRENGTH: 200 MG)
     Route: 048
     Dates: start: 20210726, end: 20210920
  2. ALPELISIB [Suspect]
     Active Substance: ALPELISIB
     Dosage: 300 MG (STRENGTH: 50 MG)
     Route: 048
     Dates: start: 20210726, end: 20210920
  3. ALPELISIB [Suspect]
     Active Substance: ALPELISIB
     Dosage: UNK
     Route: 048
     Dates: start: 20210802
  4. ALPELISIB [Suspect]
     Active Substance: ALPELISIB
     Dosage: UNK
     Route: 048
     Dates: start: 20210819
  5. IRBESARTAN [Concomitant]
     Active Substance: IRBESARTAN
     Indication: Hypertension
     Dosage: UNK, BID (MANY YEARS)
     Route: 065
  6. OXYCONTIN [Concomitant]
     Active Substance: OXYCODONE HYDROCHLORIDE
     Indication: Pain management
     Dosage: 20 MG, BID (1 YEAR)
     Route: 048
  7. ACETAMINOPHEN [Concomitant]
     Active Substance: ACETAMINOPHEN
     Indication: Product used for unknown indication
     Dosage: UNK
     Route: 065

REACTIONS (16)
  - Diabetes mellitus [Unknown]
  - Renal failure [Recovered/Resolved]
  - Hyperglycaemia [Recovered/Resolved]
  - Weight decreased [Unknown]
  - Polydipsia [Unknown]
  - Fatigue [Unknown]
  - Dry mouth [Unknown]
  - Pyrexia [Recovered/Resolved]
  - Blood osmolarity increased [Recovered/Resolved]
  - Confusional state [Unknown]
  - Arthralgia [Unknown]
  - Blood glucose increased [Recovered/Resolved]
  - Dehydration [Unknown]
  - Pyrexia [Unknown]
  - Diarrhoea [Recovered/Resolved]
  - Diarrhoea [Recovered/Resolved]

NARRATIVE: CASE EVENT DATE: 20210730
